FAERS Safety Report 18245227 (Version 1)
Quarter: 2020Q3

REPORT INFORMATION
  Report Type: Spontaneous
  Country: FR (occurrence: FR)
  Receive Date: 20200909
  Receipt Date: 20200909
  Transmission Date: 20201103
  Serious: Yes (Other)
  Sender: FDA-Public Use
  Company Number: FR-BAUSCH-BL-2020-025410

PATIENT
  Sex: Female

DRUGS (4)
  1. ESPERAL [Suspect]
     Active Substance: DISULFIRAM
     Indication: DRUG ABUSE
     Dosage: UNSPECIFIED
     Route: 065
  2. SERESTA [Suspect]
     Active Substance: OXAZEPAM
     Indication: DRUG ABUSE
     Dosage: UNSPECIFIED
     Route: 065
  3. VENLAFAXINE [Suspect]
     Active Substance: VENLAFAXINE HYDROCHLORIDE
     Indication: DRUG ABUSE
     Dosage: UNSPECIFIED
     Route: 065
  4. ZOPICLONE [Suspect]
     Active Substance: ZOPICLONE
     Indication: DRUG ABUSE
     Dosage: UNSPECIFIED
     Route: 065

REACTIONS (2)
  - Drug abuse [Not Recovered/Not Resolved]
  - Prescription form tampering [Not Recovered/Not Resolved]
